FAERS Safety Report 13548859 (Version 1)
Quarter: 2017Q2

REPORT INFORMATION
  Report Type: Spontaneous
  Country: US (occurrence: US)
  Receive Date: 20170515
  Receipt Date: 20170515
  Transmission Date: 20170830
  Serious: Yes (Death)
  Sender: FDA-Public Use
  Company Number: None

PATIENT
  Age: 86 Year
  Sex: Female

DRUGS (4)
  1. HCTZ [Concomitant]
     Active Substance: HYDROCHLOROTHIAZIDE
  2. TRAMADOL. [Concomitant]
     Active Substance: TRAMADOL
  3. LOSARTAN. [Concomitant]
     Active Substance: LOSARTAN
  4. ERIVEDGE [Suspect]
     Active Substance: VISMODEGIB
     Route: 048
     Dates: start: 20170331

REACTIONS (1)
  - Death [None]

NARRATIVE: CASE EVENT DATE: 20170422
